FAERS Safety Report 25985193 (Version 3)
Quarter: 2025Q4

REPORT INFORMATION
  Report Type: Spontaneous
  Country: US (occurrence: US)
  Receive Date: 20251031
  Receipt Date: 20251211
  Transmission Date: 20260117
  Serious: Yes (Hospitalization)
  Sender: JOHNSON AND JOHNSON
  Company Number: US-JNJFOC-20251026935

PATIENT
  Sex: Male

DRUGS (3)
  1. STELARA [Suspect]
     Active Substance: USTEKINUMAB
     Indication: Psoriasis
     Dosage: STRENGTH: 45.00 MG / 0.50 ML
     Route: 058
  2. STELARA [Suspect]
     Active Substance: USTEKINUMAB
  3. PREDNISONE [Suspect]
     Active Substance: PREDNISONE
     Indication: Dysphonia

REACTIONS (6)
  - Diabetes mellitus [Unknown]
  - Dysphonia [Not Recovered/Not Resolved]
  - Accidental exposure to product [Unknown]
  - Product leakage [Unknown]
  - Device deployment issue [Unknown]
  - Product dose omission issue [Unknown]
